FAERS Safety Report 19450670 (Version 7)
Quarter: 2022Q2

REPORT INFORMATION
  Report Type: Report from Study
  Country: FR (occurrence: FR)
  Receive Date: 20210622
  Receipt Date: 20220601
  Transmission Date: 20220720
  Serious: Yes (Hospitalization, Other)
  Sender: FDA-Public Use
  Company Number: FR-BRISTOL-MYERS SQUIBB COMPANY-BMS-2021-058577

PATIENT
  Age: 75 Year
  Sex: Female
  Weight: 65 kg

DRUGS (26)
  1. IPILIMUMAB [Suspect]
     Active Substance: IPILIMUMAB
     Indication: Colorectal cancer metastatic
     Route: 042
     Dates: start: 20200730, end: 20201020
  2. OXALIPLATIN [Suspect]
     Active Substance: OXALIPLATIN
     Indication: Colorectal cancer metastatic
     Route: 042
     Dates: start: 20200302, end: 20200608
  3. FLUOROURACIL [Suspect]
     Active Substance: FLUOROURACIL
     Indication: Colorectal cancer metastatic
     Route: 040
     Dates: start: 20200302, end: 20200302
  4. FLUOROURACIL [Suspect]
     Active Substance: FLUOROURACIL
     Route: 042
     Dates: start: 20200302, end: 20200304
  5. FLUOROURACIL [Suspect]
     Active Substance: FLUOROURACIL
     Route: 040
     Dates: start: 20200707, end: 20200707
  6. FLUOROURACIL [Suspect]
     Active Substance: FLUOROURACIL
     Route: 042
     Dates: start: 20200707, end: 20200709
  7. LEUCOVORIN [Suspect]
     Active Substance: LEUCOVORIN
     Indication: Colorectal cancer metastatic
     Route: 042
     Dates: start: 20200302, end: 20200302
  8. LEUCOVORIN [Suspect]
     Active Substance: LEUCOVORIN
     Route: 042
     Dates: start: 20200707, end: 20200707
  9. FERINJECT [Concomitant]
     Active Substance: FERRIC CARBOXYMALTOSE
     Indication: Product used for unknown indication
     Dosage: 1 GRAM
     Route: 058
     Dates: start: 20200330
  10. METHYLPREDNISOLONE [Concomitant]
     Active Substance: METHYLPREDNISOLONE
     Indication: Nausea
     Dosage: 20 MILLIGRAM
     Route: 048
     Dates: start: 20200416
  11. METHYLPREDNISOLONE [Concomitant]
     Active Substance: METHYLPREDNISOLONE
     Indication: Colitis
     Dosage: 40 MILLIGRAM
     Route: 048
     Dates: start: 20201112
  12. METHYLPREDNISOLONE [Concomitant]
     Active Substance: METHYLPREDNISOLONE
     Dosage: 10 MILLIGRAM
     Route: 048
     Dates: start: 20201222, end: 20210104
  13. INNOHEP [Concomitant]
     Active Substance: TINZAPARIN SODIUM
     Indication: Product used for unknown indication
     Dosage: 1 DOSAGE FORM=14000 UNIT NOS
     Route: 058
     Dates: start: 20200217
  14. DOLIPRANE [Concomitant]
     Active Substance: ACETAMINOPHEN
     Indication: Abdominal pain
     Dosage: 1 GRAM
     Route: 048
     Dates: start: 20200331
  15. PHLOROGLUCINOL\1,3,5-TRIMETHOXYBENZENE [Concomitant]
     Active Substance: PHLOROGLUCINOL\1,3,5-TRIMETHOXYBENZENE
     Indication: Abdominal pain
     Dosage: 80 MILLIGRAM
     Route: 048
     Dates: start: 20200331
  16. TRAMADOL [Concomitant]
     Active Substance: TRAMADOL
     Indication: Abdominal pain
     Dosage: 100 MILLIGRAM
     Route: 048
     Dates: start: 20200414
  17. IMODIUM [Concomitant]
     Active Substance: LOPERAMIDE HYDROCHLORIDE
     Indication: Diarrhoea
     Dosage: 6 MILLIGRAM
     Route: 048
     Dates: start: 20200302
  18. MAGNE B6 [Concomitant]
     Active Substance: MAGNESIUM\PYRIDOXINE
     Indication: Hypomagnesaemia
     Dosage: 1 DOSAGE FORM=1 UNIT NOS
     Route: 048
     Dates: start: 20200316
  19. TRIMEBUTINE MALEATE [Concomitant]
     Active Substance: TRIMEBUTINE MALEATE
     Indication: Abdominal pain
     Dosage: 1 DOSAGE FORM= 1 UNIT NOS
     Route: 048
     Dates: start: 20200812
  20. SKENAN [Concomitant]
     Active Substance: MORPHINE SULFATE
     Indication: Abdominal pain
     Dosage: 20 MILLIGRAM
     Route: 048
     Dates: start: 20200827
  21. PERFALGAN [Concomitant]
     Active Substance: ACETAMINOPHEN
     Indication: Hyperthermia
     Dosage: 1 GRAM
     Route: 048
     Dates: start: 20201020
  22. ENTOCORT [Concomitant]
     Active Substance: BUDESONIDE
     Indication: Colitis
     Dosage: 9 MILLIGRAM
     Route: 048
     Dates: start: 20201112
  23. CALCIUM PHOSPHATE, DIBASIC, ANHYDROUS\MAGNESIUM GLYCEROPHOSPHATE\PHOSP [Concomitant]
     Active Substance: CALCIUM PHOSPHATE, DIBASIC, ANHYDROUS\MAGNESIUM GLYCEROPHOSPHATE\PHOSPHORIC ACID\SODIUM PHOSPHATE, D
     Indication: Hypophosphataemia
     Dosage: 1 DOSAGE FORM=1 UNIT NOS
     Route: 048
     Dates: start: 20200316
  24. POTASSIUM CHLORIDE [Concomitant]
     Active Substance: POTASSIUM CHLORIDE
     Indication: Hypokalaemia
     Dosage: 1 DOSAGE FORM=1 UNIT NOS
     Route: 048
     Dates: start: 20200316
  25. POLARAMINE [Concomitant]
     Active Substance: DEXCHLORPHENIRAMINE MALEATE
     Indication: Product used for unknown indication
     Dosage: 5 MILLIGRAM
     Route: 042
     Dates: start: 20200330
  26. AMINO ACIDS\DEXTROSE\ELECTROLYTES NOS\SOYBEAN OIL [Concomitant]
     Active Substance: AMINO ACIDS\DEXTROSE\ELECTROLYTES NOS\SOYBEAN OIL
     Indication: Renal failure
     Dosage: 1 DOSAGE FORM=1 UNIT NOS
     Route: 042
     Dates: start: 20201217, end: 20210104

REACTIONS (1)
  - Encephalopathy [Recovered/Resolved]

NARRATIVE: CASE EVENT DATE: 20210107
